FAERS Safety Report 4923587-9 (Version None)
Quarter: 2006Q1

REPORT INFORMATION
  Report Type: 
  Country: None (occurrence: None)
  Receive Date: 20060221
  Receipt Date: 20060206
  Transmission Date: 20060701
  Serious: Yes (Hospitalization, Other)
  Sender: FDA-Public Use
  Company Number: 2006018492

PATIENT
  Sex: Female
  Weight: 52.1637 kg

DRUGS (4)
  1. LIPITOR [Suspect]
     Indication: BLOOD CHOLESTEROL INCREASED
     Dosage: 10 MG (10 MG,1 IN 1 D)
  2. ASPIRIN [Suspect]
     Indication: ILL-DEFINED DISORDER
     Dosage: 81 MG (81 MG,1 IN 1 D)
  3. ALL OTHER THERAPEUTIC PRODUCTS (ALL OTHER THERAPEUTIC PRODUCTS) [Concomitant]
  4. OMEPRAZOLE [Concomitant]

REACTIONS (7)
  - ABDOMINAL PAIN UPPER [None]
  - CONDITION AGGRAVATED [None]
  - DIZZINESS [None]
  - GASTRITIS [None]
  - NAUSEA [None]
  - OESOPHAGEAL DISORDER [None]
  - RETCHING [None]
